FAERS Safety Report 9945659 (Version 1)
Quarter: 2014Q1

REPORT INFORMATION
  Report Type: Report from Study
  Country: US (occurrence: US)
  Receive Date: 20140303
  Receipt Date: 20140303
  Transmission Date: 20141002
  Serious: No
  Sender: FDA-Public Use
  Company Number: US-ABBVIE-13P-163-1055679-00

PATIENT
  Age: 57 Year
  Sex: Female

DRUGS (11)
  1. HUMIRA [Suspect]
     Indication: PSORIATIC ARTHROPATHY
     Dates: start: 20121005
  2. ADVAIR [Concomitant]
     Indication: ASTHMA
     Dosage: 250/50 1 INH IN AM AND 1 INH IN PM
  3. LOSARTAN [Concomitant]
     Indication: HYPERTENSION
     Dosage: 100/25
  4. COSOPT [Concomitant]
     Indication: GLAUCOMA
     Dosage: EADCH EYE IN THE AM AND PM
  5. CELEBREX [Concomitant]
     Indication: PSORIATIC ARTHROPATHY
  6. SUPPLE DRINK [Concomitant]
     Indication: ARTHROPATHY
     Dosage: 1 CAN DAILY
  7. VESICARE [Concomitant]
     Indication: INCONTINENCE
  8. EYE CAPS [Concomitant]
     Indication: PRODUCT USED FOR UNKNOWN INDICATION
  9. ZOCOR [Concomitant]
     Indication: BLOOD CHOLESTEROL INCREASED
     Dosage: AT NIGHT
  10. SPRINGTIME JOINT HEALTH [Concomitant]
     Indication: ARTHRALGIA
  11. FLECTOR PATCHES [Concomitant]
     Indication: ARTHRALGIA

REACTIONS (2)
  - Somnolence [Not Recovered/Not Resolved]
  - Injection site pain [Recovered/Resolved]
